FAERS Safety Report 6617984-3 (Version None)
Quarter: 2010Q1

REPORT INFORMATION
  Report Type: 
  Country: None (occurrence: None)
  Receive Date: 20100308
  Receipt Date: 20100302
  Transmission Date: 20100710
  Serious: Yes (Death)
  Sender: FDA-Public Use
  Company Number: PHHY2010IN11950

PATIENT
  Age: 20 Year
  Sex: Female

DRUGS (1)
  1. ASUNRA [Suspect]

REACTIONS (1)
  - DISEASE PROGRESSION [None]
